FAERS Safety Report 5210830-4 (Version None)
Quarter: 2007Q1

REPORT INFORMATION
  Report Type: 
  Country: None (occurrence: None)
  Receive Date: 20070117
  Receipt Date: 20070105
  Transmission Date: 20070707
  Serious: Yes (Other)
  Sender: FDA-Public Use
  Company Number: US-PFIZER INC-2007002147

PATIENT
  Sex: Female
  Weight: 95.3 kg

DRUGS (8)
  1. ZYVOX [Suspect]
     Indication: STAPHYLOCOCCAL INFECTION
  2. DIOVAN HCT [Concomitant]
  3. SYNTHROID [Concomitant]
  4. REGLAN [Concomitant]
  5. ACIFLUX [Concomitant]
  6. ULTRAM [Concomitant]
  7. VITAMINS [Concomitant]
  8. VITAMIN B-12 [Concomitant]

REACTIONS (6)
  - ANAEMIA [None]
  - HAEMATOCRIT DECREASED [None]
  - NEUROPATHY PERIPHERAL [None]
  - RED BLOOD CELL COUNT DECREASED [None]
  - RED BLOOD CELL SEDIMENTATION RATE INCREASED [None]
  - WHITE BLOOD CELL COUNT INCREASED [None]
